FAERS Safety Report 5712964-4 (Version None)
Quarter: 2008Q2

REPORT INFORMATION
  Report Type: 
  Country: None (occurrence: None)
  Receive Date: 20080418
  Receipt Date: 20080408
  Transmission Date: 20081010
  Serious: Yes (Hospitalization)
  Sender: FDA-Public Use
  Company Number: 2008BI009232

PATIENT
  Age: 59 Year
  Sex: Male
  Weight: 62.5964 kg

DRUGS (1)
  1. AVONEX [Suspect]
     Indication: MULTIPLE SCLEROSIS
     Dosage: 30 UG; QW; IM
     Route: 030

REACTIONS (7)
  - JOINT SPRAIN [None]
  - MULTIPLE SCLEROSIS [None]
  - MUSCLE SPASTICITY [None]
  - PROSTATIC SPECIFIC ANTIGEN INCREASED [None]
  - SOFT TISSUE INJURY [None]
  - URINARY RETENTION [None]
  - URINARY TRACT INFECTION [None]
